FAERS Safety Report 13201817 (Version 3)
Quarter: 2022Q1

REPORT INFORMATION
  Report Type: Other
  Country: US (occurrence: None)
  Receive Date: 20170209
  Receipt Date: 20220221
  Transmission Date: 20220423
  Serious: Yes (Other)
  Sender: FDA-Public Use
  Company Number: US-ROCHE-1714076

PATIENT

DRUGS (4)
  1. RITUXIMAB [Suspect]
     Active Substance: RITUXIMAB
     Indication: B-cell lymphoma
     Dosage: DAYS 2, 8, 15, AND 22 OF CYCLE 1 AND THEN DAY 1 OF CYCLES 3, 5, 7, 9, 11 FOR 28-DAY CYCLES.
     Route: 042
  2. BUPARLISIB [Suspect]
     Active Substance: BUPARLISIB
     Indication: B-cell lymphoma
     Dosage: DAYS 1- 28
     Route: 065
  3. BUPARLISIB [Suspect]
     Active Substance: BUPARLISIB
     Route: 065
  4. ALLOPURINOL [Suspect]
     Active Substance: ALLOPURINOL
     Indication: Product used for unknown indication
     Route: 065

REACTIONS (1)
  - Rash maculo-papular [Recovered/Resolved]
